FAERS Safety Report 9424561 (Version 2)
Quarter: 2013Q3

REPORT INFORMATION
  Report Type: Report from Study
  Country: JP (occurrence: JP)
  Receive Date: 20130729
  Receipt Date: 20130809
  Transmission Date: 20140515
  Serious: Yes (Life-Threatening, Hospitalization)
  Sender: FDA-Public Use
  Company Number: JP-NOVOPROD-383712

PATIENT
  Age: 62 Year
  Sex: Female

DRUGS (6)
  1. NOVONORM [Suspect]
     Indication: TYPE 2 DIABETES MELLITUS
     Dosage: 1.5 MG, QD
     Route: 048
     Dates: start: 20120625, end: 20130420
  2. GLIMEPIRIDE [Concomitant]
     Dosage: UNKNOWN
     Route: 048
  3. MYSLEE [Concomitant]
     Dosage: UNKNOWN
     Route: 048
     Dates: end: 20130420
  4. CRESTOR [Concomitant]
     Dosage: UNKNOWN
     Route: 048
     Dates: start: 20121003
  5. CYMBALTA [Concomitant]
     Dosage: UNKNOWN
     Route: 048
     Dates: start: 20130216, end: 20130420
  6. SLOW-K [Concomitant]
     Dosage: UNKNOWN
     Route: 048
     Dates: start: 20130305

REACTIONS (1)
  - Cardiac failure acute [Recovering/Resolving]
